FAERS Safety Report 6812120-2 (Version None)
Quarter: 2010Q3

REPORT INFORMATION
  Report Type: 
  Country: None (occurrence: None)
  Receive Date: 20100701
  Receipt Date: 20091113
  Transmission Date: 20110219
  Serious: No
  Sender: FDA-Public Use
  Company Number: US-ABBOTT-09P-163-0609148-00

PATIENT
  Sex: Male
  Weight: 111.23 kg

DRUGS (17)
  1. NORVIR [Suspect]
     Indication: HIV INFECTION
     Dates: start: 20091001
  2. CARVEDILOL [Concomitant]
     Indication: CORONARY ARTERY BYPASS
  3. EPIVIR [Concomitant]
     Indication: HIV INFECTION
  4. REYATAZ [Concomitant]
     Indication: HIV INFECTION
  5. ZOVADINE [Concomitant]
     Indication: HIV INFECTION
  6. SUSTIVA [Concomitant]
     Indication: HIV INFECTION
  7. FLOMAX [Concomitant]
     Indication: PROSTATOMEGALY
  8. FENOFIBRATE [Concomitant]
     Indication: BLOOD TRIGLYCERIDES INCREASED
  9. ACTOS [Concomitant]
     Indication: DIABETES MELLITUS
  10. HUMULIN R [Concomitant]
     Indication: DIABETES MELLITUS
  11. HUMULIN N [Concomitant]
     Indication: DIABETES MELLITUS
  12. CRESTOR [Concomitant]
     Indication: BLOOD CHOLESTEROL INCREASED
  13. AMITRIPTYLINE [Concomitant]
     Indication: NEUROPATHY PERIPHERAL
  14. GABAPENTIN [Concomitant]
     Indication: NEUROPATHY PERIPHERAL
  15. AMBIEN [Concomitant]
     Indication: SLEEP DISORDER THERAPY
  16. ASPIRIN [Concomitant]
     Indication: CARDIOVASCULAR EVENT PROPHYLAXIS
  17. FISH OIL [Concomitant]
     Indication: ROUTINE HEALTH MAINTENANCE

REACTIONS (1)
  - ABDOMINAL DISCOMFORT [None]
